FAERS Safety Report 10387971 (Version 2)
Quarter: 2014Q3

REPORT INFORMATION
  Report Type: Spontaneous
  Country: CN (occurrence: CN)
  Receive Date: 20140815
  Receipt Date: 20140815
  Transmission Date: 20150326
  Serious: Yes (Other)
  Sender: FDA-Public Use
  Company Number: CN-009507513-1407CHN003410

PATIENT
  Age: 68 Year
  Sex: Male

DRUGS (5)
  1. BETALOC [Concomitant]
     Active Substance: METOPROLOL TARTRATE
     Indication: HYPERTENSION
     Dosage: UNK
     Route: 048
     Dates: start: 201402
  2. PROSCAR [Suspect]
     Active Substance: FINASTERIDE
     Indication: BENIGN PROSTATIC HYPERPLASIA
     Dosage: 5 MG, QD
     Route: 048
     Dates: start: 201404, end: 2014
  3. PROSCAR [Suspect]
     Active Substance: FINASTERIDE
     Dosage: 5 MG, QD
     Route: 048
     Dates: start: 201404, end: 2014
  4. PROSCAR [Suspect]
     Active Substance: FINASTERIDE
     Dosage: 5 MG, QD
     Route: 048
     Dates: start: 201404, end: 20140805
  5. NORVASC [Concomitant]
     Active Substance: AMLODIPINE BESYLATE
     Indication: HYPERTENSION
     Dosage: UNK
     Route: 048
     Dates: start: 201402

REACTIONS (2)
  - Prostatomegaly [Not Recovered/Not Resolved]
  - Hypertension [Recovering/Resolving]

NARRATIVE: CASE EVENT DATE: 20140702
